FAERS Safety Report 7292696-4 (Version None)
Quarter: 2011Q1

REPORT INFORMATION
  Report Type: 
  Country: None (occurrence: None)
  Receive Date: 20110215
  Receipt Date: 20110202
  Transmission Date: 20110831
  Serious: Yes (Other)
  Sender: FDA-Public Use
  Company Number: PHFR2010GB06136

PATIENT
  Sex: Male
  Weight: 64 kg

DRUGS (3)
  1. CLOZARIL [Suspect]
     Dosage: 450 MG
     Route: 048
     Dates: start: 20080101
  2. HYOSCINE HBR HYT [Concomitant]
     Indication: SALIVARY HYPERSECRETION
     Dosage: 150 MG
     Route: 048
     Dates: start: 20080101
  3. CLOZARIL [Suspect]
     Indication: SCHIZOPHRENIA
     Dosage: UNK
     Route: 048
     Dates: start: 20060531

REACTIONS (4)
  - MALAISE [None]
  - INFLUENZA LIKE ILLNESS [None]
  - NEUTROPHIL COUNT DECREASED [None]
  - FATIGUE [None]
